FAERS Safety Report 12713224 (Version 1)
Quarter: 2016Q3

REPORT INFORMATION
  Report Type: Spontaneous
  Country: US (occurrence: US)
  Receive Date: 20160902
  Receipt Date: 20160902
  Transmission Date: 20161109
  Serious: Yes (Hospitalization)
  Sender: FDA-Public Use
  Company Number: US-BAUSCH-BL-2016-020941

PATIENT
  Age: 70 Year
  Sex: Male

DRUGS (3)
  1. PROVENGE [Suspect]
     Active Substance: SIPULEUCEL-T
     Route: 042
     Dates: start: 20160819, end: 20160819
  2. PROVENGE [Suspect]
     Active Substance: SIPULEUCEL-T
     Indication: PROSTATE CANCER
     Route: 042
     Dates: start: 20160711, end: 20160711
  3. PROVENGE [Suspect]
     Active Substance: SIPULEUCEL-T
     Route: 042
     Dates: start: 20160725, end: 20160725

REACTIONS (1)
  - Device occlusion [Unknown]

NARRATIVE: CASE EVENT DATE: 20160814
